FAERS Safety Report 9098221 (Version 2)
Quarter: 2013Q1

REPORT INFORMATION
  Report Type: Spontaneous
  Country: IE (occurrence: IE)
  Receive Date: 20130213
  Receipt Date: 20130222
  Transmission Date: 20140127
  Serious: Yes (Life-Threatening, Other)
  Sender: FDA-Public Use
  Company Number: IE-B.I. PHARMACEUTICALS,INC./RIDGEFIELD-2013-UK-00196UK

PATIENT
  Age: 84 Year
  Sex: Female

DRUGS (6)
  1. PERSANTIN [Suspect]
     Indication: CEREBROVASCULAR ACCIDENT PROPHYLAXIS
     Dosage: 400 MG
     Route: 048
     Dates: end: 20130206
  2. ASPIRIN [Concomitant]
     Indication: CEREBROVASCULAR ACCIDENT PROPHYLAXIS
     Dosage: 75 MG
     Route: 048
     Dates: end: 20130206
  3. AMLODIPINE [Concomitant]
     Indication: HYPERTENSION
     Dosage: 10 MG
     Route: 048
  4. MEMANTINE [Concomitant]
     Indication: DEMENTIA
     Dosage: 10 MG
     Route: 048
  5. GLICLAZIDE [Concomitant]
     Indication: TYPE 2 DIABETES MELLITUS
     Dosage: 30 MG
     Route: 048
  6. QUETIAPINE [Concomitant]
     Indication: DEMENTIA
     Dosage: 12.5 MG
     Route: 048

REACTIONS (3)
  - Anaemia [Not Recovered/Not Resolved]
  - Jaundice [Unknown]
  - Blood creatinine increased [Unknown]
